FAERS Safety Report 11156521 (Version 1)
Quarter: 2015Q2

REPORT INFORMATION
  Report Type: Spontaneous
  Country: PL (occurrence: PL)
  Receive Date: 20150602
  Receipt Date: 20150602
  Transmission Date: 20150821
  Serious: Yes (Other)
  Sender: FDA-Public Use
  Company Number: PL-TEVA-567247ISR

PATIENT
  Age: 56 Year
  Sex: Male
  Weight: 68 kg

DRUGS (3)
  1. LEUKOWORYNA [Suspect]
     Active Substance: LEUCOVORIN
     Indication: RECTAL CANCER
     Route: 042
     Dates: start: 20130826, end: 20130925
  2. OXALIPLATIN. [Suspect]
     Active Substance: OXALIPLATIN
     Indication: RECTAL CANCER
     Route: 042
     Dates: start: 20130826, end: 20130925
  3. 5-FLUOROURACYL [Suspect]
     Active Substance: FLUOROURACIL
     Indication: RECTAL CANCER
     Route: 042
     Dates: start: 20130826, end: 20130925

REACTIONS (1)
  - Neutropenia [Unknown]

NARRATIVE: CASE EVENT DATE: 20131014
